FAERS Safety Report 13579549 (Version 2)
Quarter: 2017Q2

REPORT INFORMATION
  Report Type: Report from Study
  Country: None (occurrence: CO)
  Receive Date: 20170525
  Receipt Date: 20170613
  Transmission Date: 20170830
  Serious: Yes (Other)
  Sender: FDA-Public Use
  Company Number: CO-ABBVIE-17K-036-1939793-00

PATIENT
  Age: 80 Year
  Sex: Female
  Weight: 68 kg

DRUGS (2)
  1. HUMIRA [Suspect]
     Active Substance: ADALIMUMAB
     Route: 058
     Dates: start: 2017
  2. HUMIRA [Suspect]
     Active Substance: ADALIMUMAB
     Indication: RHEUMATOID ARTHRITIS
     Route: 058
     Dates: start: 20141217, end: 20170223

REACTIONS (4)
  - Chronic obstructive pulmonary disease [Unknown]
  - Chest X-ray abnormal [Not Recovered/Not Resolved]
  - Urinary system x-ray abnormal [Not Recovered/Not Resolved]
  - Pulmonary calcification [Unknown]

NARRATIVE: CASE EVENT DATE: 20170330
